FAERS Safety Report 8039356-X (Version None)
Quarter: 2012Q1

REPORT INFORMATION
  Report Type: 
  Country: None (occurrence: None)
  Receive Date: 20120111
  Receipt Date: 20111212
  Transmission Date: 20120608
  Serious: No
  Sender: FDA-Public Use
  Company Number: US-AMGEN-USASP2011066173

PATIENT
  Age: 49 Year
  Sex: Female

DRUGS (1)
  1. ENBREL [Suspect]
     Indication: RHEUMATOID ARTHRITIS
     Dosage: 50 MG, QWK
     Dates: start: 20100301

REACTIONS (8)
  - SINUS HEADACHE [None]
  - CONSTIPATION [None]
  - SINUS CONGESTION [None]
  - VITAMIN D DEFICIENCY [None]
  - SINUSITIS [None]
  - HAEMATOCRIT INCREASED [None]
  - DIARRHOEA [None]
  - VITAMIN B12 DEFICIENCY [None]
